FAERS Safety Report 22606191 (Version 1)
Quarter: 2023Q2

REPORT INFORMATION
  Report Type: Spontaneous
  Country: FR (occurrence: FR)
  Receive Date: 20230615
  Receipt Date: 20230615
  Transmission Date: 20230721
  Serious: Yes (Death, Hospitalization)
  Sender: FDA-Public Use
  Company Number: FR-BAYER-2023A082355

PATIENT
  Sex: Male
  Weight: 87 kg

DRUGS (1)
  1. STIVARGA [Suspect]
     Active Substance: REGORAFENIB
     Dosage: 80 MG, QD

REACTIONS (1)
  - Dyspnoea exertional [Fatal]

NARRATIVE: CASE EVENT DATE: 20220304
